FAERS Safety Report 17350602 (Version 1)
Quarter: 2020Q1

REPORT INFORMATION
  Report Type: Spontaneous
  Country: ES (occurrence: ES)
  Receive Date: 20200130
  Receipt Date: 20200130
  Transmission Date: 20200409
  Serious: Yes (Other)
  Sender: FDA-Public Use
  Company Number: ES-TEVA-2020-ES-1176845

PATIENT
  Age: 89 Year
  Sex: Male

DRUGS (4)
  1. ATORVASTATINA 80 MG 28 COMPRIMIDOS [Suspect]
     Active Substance: ATORVASTATIN
     Indication: ACUTE MYOCARDIAL INFARCTION
     Dosage: 40 MG
     Route: 048
     Dates: start: 20180309
  2. ARTEDIL 10 MG COMPRIMIDOS, 28 COMPRIMIDOS [Concomitant]
     Active Substance: MANIDIPINE HYDROCHLORIDE
     Indication: CARDIOVASCULAR DISORDER
     Dosage: 5 MG
     Route: 048
     Dates: start: 20180417
  3. LOSART?N 50 MG 28 COMPRIMIDOS [Concomitant]
     Indication: HYPERTENSION
     Dosage: 50 MG
     Route: 048
     Dates: start: 20141224
  4. PANTOPRAZOL 20 MG 56 COMPRIMIDOS [Concomitant]
     Active Substance: PANTOPRAZOLE
     Indication: PRODUCT USED FOR UNKNOWN INDICATION
     Dosage: 20 MG
     Route: 048
     Dates: start: 20180310

REACTIONS (2)
  - Diarrhoea [Not Recovered/Not Resolved]
  - Anal incontinence [Not Recovered/Not Resolved]

NARRATIVE: CASE EVENT DATE: 20200101
